FAERS Safety Report 20658094 (Version 1)
Quarter: 2022Q1

REPORT INFORMATION
  Report Type: Spontaneous
  Country: US (occurrence: None)
  Receive Date: 20220330
  Receipt Date: 20220330
  Transmission Date: 20220423
  Serious: No
  Sender: FDA-Public Use
  Company Number: None

PATIENT
  Age: 17 Year
  Sex: Male
  Weight: 24.49 kg

DRUGS (8)
  1. ZOLINZA [Suspect]
     Active Substance: VORINOSTAT
     Indication: Adrenal gland cancer
     Dosage: OTHER QUANTITY : 200-100MG;?FREQUENCY : AS DIRECTED;?
     Route: 048
     Dates: start: 202104, end: 20220330
  2. ATIVAN [Concomitant]
     Active Substance: LORAZEPAM
  3. BACTRIM DS [Concomitant]
     Active Substance: SULFAMETHOXAZOLE\TRIMETHOPRIM
  4. ERGOCAL [Concomitant]
  5. GRANISETRON HYDROCHLORIDE [Concomitant]
     Active Substance: GRANISETRON HYDROCHLORIDE
  6. LEVOTHYROXINE SODIUM [Concomitant]
     Active Substance: LEVOTHYROXINE SODIUM
  7. MARINOL [Concomitant]
     Active Substance: DRONABINOL
  8. OLANZAPINE [Concomitant]
     Active Substance: OLANZAPINE

REACTIONS (1)
  - Disease progression [None]
